FAERS Safety Report 16974676 (Version 2)
Quarter: 2020Q2

REPORT INFORMATION
  Report Type: Spontaneous
  Country: US (occurrence: US)
  Receive Date: 20191030
  Receipt Date: 20200522
  Transmission Date: 20200713
  Serious: Yes (Other)
  Sender: FDA-Public Use
  Company Number: US-CELLTRION INC.-2019US021697

PATIENT

DRUGS (1)
  1. INFLECTRA [Suspect]
     Active Substance: INFLIXIMAB-DYYB
     Indication: COLITIS ULCERATIVE
     Dosage: UNK, EVERY 8 WEEKS (MAINTENANCE REGIMEN)
     Route: 065

REACTIONS (3)
  - Cerebrovascular accident [Recovering/Resolving]
  - Inappropriate schedule of product administration [Unknown]
  - Speech disorder [Unknown]
